FAERS Safety Report 8976393 (Version 1)
Quarter: 2012Q4

REPORT INFORMATION
  Report Type: 
  Country: US (occurrence: US)
  Receive Date: 20121220
  Receipt Date: 20121220
  Transmission Date: 20130627
  Serious: Yes (Other)
  Sender: FDA-Public Use
  Company Number: US-PFIZER INC-2012317231

PATIENT
  Age: 50 Year
  Sex: Male

DRUGS (2)
  1. ZIPRASIDONE HCL [Suspect]
     Indication: PARANOID SCHIZOPHRENIA
     Dosage: 40 mg, 2x/day
     Route: 048
  2. ZIPRASIDONE HCL [Suspect]
     Dosage: 80 mg, 2x/day
     Route: 048

REACTIONS (1)
  - Rhabdomyolysis [Recovering/Resolving]
